FAERS Safety Report 18431638 (Version 3)
Quarter: 2021Q3

REPORT INFORMATION
  Report Type: Report from Study
  Country: NL (occurrence: NL)
  Receive Date: 20201027
  Receipt Date: 20210706
  Transmission Date: 20211014
  Serious: Yes (Other)
  Sender: FDA-Public Use
  Company Number: NL-PFIZER INC-2020404553

PATIENT
  Age: 67 Year
  Sex: Female
  Weight: 80 kg

DRUGS (20)
  1. XGEVA [Suspect]
     Active Substance: DENOSUMAB
     Indication: PROPHYLAXIS
     Dosage: 120 MG, CYCLIC (EVERY 4 WEEKS, (1.7ML))
     Route: 058
     Dates: start: 20190611
  2. XGEVA [Suspect]
     Active Substance: DENOSUMAB
     Dosage: UNK
     Route: 058
  3. MOMETASON [Concomitant]
     Active Substance: MOMETASONE FUROATE
     Dosage: 1 UNK, 1X/DAY (1MG / GRAM)
  4. DICLOFENAC [Concomitant]
     Active Substance: DICLOFENAC
     Dosage: 23.2 MILLIGRAM PER GRAM,1D?GE
  5. LETROZOLE. [Suspect]
     Active Substance: LETROZOLE
     Indication: BREAST CANCER METASTATIC
     Dosage: 2.5 MG, 1X/DAY
     Route: 048
     Dates: start: 20190524
  6. TETANUS TOXOID ADSORBED (VACCINE) [Concomitant]
     Active Substance: CLOSTRIDIUM TETANI TOXOID ANTIGEN (FORMALDEHYDE INACTIVATED)
  7. HARPAGOPHYTUM [Concomitant]
     Active Substance: HARPAGOPHYTUM PROCUMBENS ROOT\HERBALS
     Dosage: 480 MG (2D1T)
  8. CLOBETASOL [Concomitant]
     Active Substance: CLOBETASOL
     Dosage: UNK (0.5 MILLIGRAM PER GRAM, 2D)
  9. OMEPRAZOL [Concomitant]
     Active Substance: OMEPRAZOLE
     Dosage: 20 MG (1?2 CAPSULES)
  10. CALCIUM + D3 [CALCIUM CARBONATE;COLECALCIFEROL] [Concomitant]
     Dosage: 1 UNK, 1X/DAY (1.25G/440IU (500MG CA)
  11. XGEVA [Suspect]
     Active Substance: DENOSUMAB
     Dosage: 120 MILLIGRAM (1.7ML), Q4WK
     Route: 058
  12. OMEPRAZOL [Concomitant]
     Active Substance: OMEPRAZOLE
     Dosage: 40 MG, 1X/DAY
     Dates: start: 20190508
  13. PEPPERMINT OIL [MENTHA X PIPERITA OIL] [Concomitant]
     Active Substance: PEPPERMINT OIL
     Dosage: 182 MG
  14. FULVESTRANT. [Concomitant]
     Active Substance: FULVESTRANT
     Dosage: EVERY 4 WEEKS 2 INJECTIONS
  15. DICLOFENAC/MISOPROSTOL [Concomitant]
     Active Substance: DICLOFENAC SODIUM\MISOPROSTOL
     Dosage: 50 MG/200MICROGRAM, 2X/DAY
  16. DEVIL^S CLAW [HARPAGOPHYTUM PROCUMBENS] [Concomitant]
     Dosage: 480 MG, 2X/DAY
  17. PALBOCICLIB [Suspect]
     Active Substance: PALBOCICLIB
     Dosage: 125 MG, 1X/DAY
     Route: 065
  18. XGEVA [Suspect]
     Active Substance: DENOSUMAB
     Dosage: UNK
     Route: 058
  19. VASELINE CETOMACROGOL CREAM [Concomitant]
     Dosage: UNK (2D?CR)
  20. CALCIUM [Concomitant]
     Active Substance: CALCIUM
     Dosage: UNK

REACTIONS (16)
  - Chills [Unknown]
  - Back pain [Not Recovered/Not Resolved]
  - Skin abrasion [Unknown]
  - Neoplasm progression [Unknown]
  - Contusion [Not Recovered/Not Resolved]
  - White blood cell count decreased [Not Recovered/Not Resolved]
  - Fall [Unknown]
  - Eczema [Unknown]
  - Rash erythematous [Unknown]
  - Nausea [Unknown]
  - Musculoskeletal discomfort [Unknown]
  - Pyrexia [Unknown]
  - Skin haemorrhage [Unknown]
  - Oral mucosal erythema [Unknown]
  - Arthralgia [Not Recovered/Not Resolved]
  - Psoriasis [Recovered/Resolved]

NARRATIVE: CASE EVENT DATE: 2019
